FAERS Safety Report 14672447 (Version 7)
Quarter: 2020Q3

REPORT INFORMATION
  Report Type: Spontaneous
  Country: US (occurrence: US)
  Receive Date: 20180323
  Receipt Date: 20200928
  Transmission Date: 20201102
  Serious: No
  Sender: FDA-Public Use
  Company Number: US-PFIZER INC-2018116865

PATIENT
  Age: 65 Year
  Sex: Female
  Weight: 72.11 kg

DRUGS (9)
  1. LETROZOLE. [Concomitant]
     Active Substance: LETROZOLE
     Indication: METASTASES TO BONE
     Dosage: UNK
     Dates: start: 201710
  2. CITALOPRAM [Concomitant]
     Active Substance: CITALOPRAM HYDROBROMIDE
     Dosage: UNK
  3. IBRANCE [Suspect]
     Active Substance: PALBOCICLIB
     Dosage: UNK
     Dates: start: 2017
  4. LETROZOLE. [Concomitant]
     Active Substance: LETROZOLE
     Dosage: UNK
     Dates: start: 201711
  5. IBRANCE [Suspect]
     Active Substance: PALBOCICLIB
     Dosage: 125 MG, CYCLIC[1 A DAY FOR 21 OFF 7]
     Route: 048
     Dates: start: 201711
  6. IBRANCE [Suspect]
     Active Substance: PALBOCICLIB
     Indication: BREAST CANCER METASTATIC
     Dosage: UNK(125MG)
     Dates: start: 20171003
  7. XGEVA [Concomitant]
     Active Substance: DENOSUMAB
     Indication: METASTASES TO BONE
     Dosage: UNK
  8. IBRANCE [Suspect]
     Active Substance: PALBOCICLIB
     Dosage: 125 MG, 1X/DAY (125 MG, ONCE A DAY)
     Route: 048
     Dates: start: 20171013
  9. MELOXICAM. [Concomitant]
     Active Substance: MELOXICAM
     Indication: INFLAMMATION
     Dosage: UNK

REACTIONS (5)
  - Fatigue [Not Recovered/Not Resolved]
  - Memory impairment [Not Recovered/Not Resolved]
  - Hyperhidrosis [Unknown]
  - Hot flush [Unknown]
  - Tumour marker increased [Unknown]

NARRATIVE: CASE EVENT DATE: 201711
